FAERS Safety Report 13625336 (Version 1)
Quarter: 2017Q2

REPORT INFORMATION
  Report Type: Spontaneous
  Country: US (occurrence: US)
  Receive Date: 20170607
  Receipt Date: 20170607
  Transmission Date: 20170830
  Serious: Yes (Hospitalization, Other)
  Sender: FDA-Public Use
  Company Number: None

PATIENT
  Age: 84 Year
  Sex: Male
  Weight: 167.64 kg

DRUGS (2)
  1. OMEPRAZOLE. [Suspect]
     Active Substance: OMEPRAZOLE
     Indication: GASTROOESOPHAGEAL REFLUX DISEASE
     Route: 048
     Dates: start: 20121115, end: 20170524
  2. PANTOPRAZOLE [Suspect]
     Active Substance: PANTOPRAZOLE
     Route: 042
     Dates: start: 20170419, end: 20170422

REACTIONS (8)
  - Nephritis [None]
  - IgA nephropathy [None]
  - Chronic kidney disease [None]
  - Acute kidney injury [None]
  - Gastrointestinal haemorrhage [None]
  - Renal failure [None]
  - Dehydration [None]
  - Tubulointerstitial nephritis [None]

NARRATIVE: CASE EVENT DATE: 20170419
